FAERS Safety Report 9528295 (Version 3)
Quarter: 2013Q4

REPORT INFORMATION
  Report Type: Spontaneous
  Country: US (occurrence: US)
  Receive Date: 20130917
  Receipt Date: 20131122
  Transmission Date: 20140711
  Serious: Yes (Other)
  Sender: FDA-Public Use
  Company Number: US-PFIZER INC-2013264277

PATIENT
  Age: 72 Year
  Sex: Male
  Weight: 82 kg

DRUGS (8)
  1. TIKOSYN [Suspect]
     Indication: ATRIAL FIBRILLATION
     Dosage: 750 UG (500MCG AM AND 250 MCG PM), 1X/DAY
     Route: 048
     Dates: start: 201308
  2. TIKOSYN [Suspect]
     Dosage: 0.125 MG IN MORNING AND 0.25 MG IN EVENING
     Route: 048
     Dates: start: 201308, end: 201309
  3. TIKOSYN [Suspect]
     Dosage: 0.250 MG IN MORNING AND 0.50 MG IN EVENING
     Route: 048
     Dates: start: 201309
  4. TIKOSYN [Suspect]
     Dosage: 500 UG, 2X/DAY
     Route: 048
  5. TAMOXIFEN CITRATE [Suspect]
     Dosage: UNK
     Dates: start: 2013
  6. METOLAZONE [Concomitant]
     Dosage: 2.5 MG, UNK (MWF)
  7. ATORVASTATIN [Concomitant]
     Dosage: UNK
  8. LASIX [Concomitant]
     Dosage: UNK

REACTIONS (3)
  - Subdural haematoma [Unknown]
  - Fall [Unknown]
  - Chest pain [Recovered/Resolved]
